FAERS Safety Report 10603109 (Version 4)
Quarter: 2015Q2

REPORT INFORMATION
  Report Type: Spontaneous
  Country: US (occurrence: US)
  Receive Date: 20141124
  Receipt Date: 20150511
  Transmission Date: 20150821
  Serious: No
  Sender: FDA-Public Use
  Company Number: US-PFIZER INC-2014296758

PATIENT
  Age: 7 Year
  Sex: Female
  Weight: 40 kg

DRUGS (2)
  1. ETHOSUXIMIDE. [Suspect]
     Active Substance: ETHOSUXIMIDE
     Indication: EPILEPSY
     Dosage: 12 ML, 2X/DAY
     Route: 048
     Dates: start: 201109
  2. ETHOSUXIMIDE. [Suspect]
     Active Substance: ETHOSUXIMIDE
     Indication: PETIT MAL EPILEPSY

REACTIONS (5)
  - Attention deficit/hyperactivity disorder [Not Recovered/Not Resolved]
  - Headache [Not Recovered/Not Resolved]
  - Learning disability [Not Recovered/Not Resolved]
  - Abdominal pain upper [Not Recovered/Not Resolved]
  - Product quality issue [Not Recovered/Not Resolved]

NARRATIVE: CASE EVENT DATE: 201109
